FAERS Safety Report 6151489-1 (Version None)
Quarter: 2009Q2

REPORT INFORMATION
  Report Type: 
  Country: None (occurrence: None)
  Receive Date: 20090410
  Receipt Date: 20090402
  Transmission Date: 20091009
  Serious: Yes (Other)
  Sender: FDA-Public Use
  Company Number: SE-AMGEN-QUU341114

PATIENT
  Age: 62 Year
  Sex: Male

DRUGS (6)
  1. NEULASTA [Suspect]
     Indication: CHEMOTHERAPY
     Route: 065
     Dates: start: 20090301
  2. RITUXIMAB [Concomitant]
     Dates: start: 20090301
  3. CYCLOPHOSPHAMIDE [Concomitant]
     Dates: start: 20090301
  4. DOXORUBICIN HCL [Concomitant]
     Dates: start: 20090301
  5. VINCRISTINE [Concomitant]
     Dates: start: 20090301
  6. PREDNISONE [Concomitant]
     Dates: start: 20090301

REACTIONS (2)
  - BLOOD ALKALINE PHOSPHATASE INCREASED [None]
  - TRANSAMINASES INCREASED [None]
